APPROVED DRUG PRODUCT: EPINEPHRINE
Active Ingredient: EPINEPHRINE
Strength: 1MG/ML (1MG/ML)
Dosage Form/Route: SOLUTION;INTRAVENOUS, INTRAOCULAR, INTRAMUSCULAR, SUBCUTANEOUS
Application: N205029 | Product #001 | TE Code: AP
Applicant: BPI LABS LLC
Approved: Jul 29, 2014 | RLD: Yes | RS: Yes | Type: RX